FAERS Safety Report 5831069-5 (Version None)
Quarter: 2008Q3

REPORT INFORMATION
  Report Type: 
  Country: None (occurrence: None)
  Receive Date: 20080801
  Receipt Date: 20080729
  Transmission Date: 20090109
  Serious: Yes (Death)
  Sender: FDA-Public Use
  Company Number: JP-GENENTECH-265436

PATIENT
  Sex: Female

DRUGS (1)
  1. ACTIVASE [Suspect]
     Indication: CEREBRAL INFARCTION
     Dosage: UNK
     Route: 042
     Dates: start: 20080721

REACTIONS (2)
  - AORTIC DISSECTION [None]
  - CARDIAC TAMPONADE [None]
